FAERS Safety Report 14081441 (Version 1)
Quarter: 2017Q4

REPORT INFORMATION
  Report Type: Spontaneous
  Country: US (occurrence: US)
  Receive Date: 20171013
  Receipt Date: 20171013
  Transmission Date: 20180321
  Serious: Yes (Hospitalization)
  Sender: FDA-Public Use
  Company Number: US-PFIZER INC-2016570829

PATIENT
  Age: 74 Year
  Sex: Male
  Weight: 78.47 kg

DRUGS (12)
  1. SUTENT [Suspect]
     Active Substance: SUNITINIB MALATE
     Dosage: 50 MG, UNK
  2. ASPIRIN 81 [Concomitant]
     Active Substance: ASPIRIN
     Dosage: 81 MG, DAILY
     Route: 048
  3. TESSALON [Concomitant]
     Active Substance: BENZONATATE
     Dosage: 100 MG, 1X/DAY(QHS)
     Route: 048
  4. TYLENOL [Concomitant]
     Active Substance: ACETAMINOPHEN
     Dosage: 1000 MG, AS NEEDED; (2 PO Q8H PRN)
     Route: 048
  5. IPRATROPIUM BROMIDE AND ALBUTEROL SULFATE [Concomitant]
     Active Substance: ALBUTEROL SULFATE\IPRATROPIUM BROMIDE
     Dosage: 2.5 ML, AS NEEDED
     Route: 045
  6. SUTENT [Suspect]
     Active Substance: SUNITINIB MALATE
     Indication: RENAL CELL CARCINOMA
     Dosage: 37.5 MG, 1X/DAY
     Route: 048
  7. SUTENT [Suspect]
     Active Substance: SUNITINIB MALATE
     Dosage: 25 MG, DAILY
     Route: 048
     Dates: start: 201701, end: 201708
  8. CORZIDE [Concomitant]
     Active Substance: BENDROFLUMETHIAZIDE\NADOLOL
     Indication: BLOOD PRESSURE ABNORMAL
     Dosage: 1 DF, AS NEEDED [BENDROFLUMETHIAZIDE: 5MG]/[NADOLOL: 40MG]
     Route: 048
  9. XANAX [Concomitant]
     Active Substance: ALPRAZOLAM
     Indication: ANXIETY
     Dosage: 0.25 MG, AS NEEDED(1 PO TID )
     Route: 048
  10. LOMOTIL [Concomitant]
     Active Substance: ATROPINE SULFATE\DIPHENOXYLATE HYDROCHLORIDE
     Dosage: 1 DF, AS NEEDED; [DIPHENOXYLATE HCL 2.5MG/ ATROPINE .025 MG] (QID)
     Route: 048
  11. HYDROXYZINE HCL [Concomitant]
     Active Substance: HYDROXYZINE HYDROCHLORIDE
     Dosage: 30 MG, AS NEEDED (TAKE 3 PO Q4-6H PRN)
     Route: 048
  12. PROBIOTICS [Concomitant]
     Active Substance: PROBIOTICS NOS
     Dosage: 1 DF, DAILY
     Route: 048

REACTIONS (7)
  - Cerebrovascular accident [Unknown]
  - Dehydration [Unknown]
  - Neoplasm progression [Unknown]
  - Hypotension [Unknown]
  - Rib fracture [Unknown]
  - Clostridium difficile infection [Unknown]
  - Fall [Unknown]

NARRATIVE: CASE EVENT DATE: 201702
